FAERS Safety Report 15856862 (Version 1)
Quarter: 2019Q1

REPORT INFORMATION
  Report Type: Spontaneous
  Country: US (occurrence: US)
  Receive Date: 20190122
  Receipt Date: 20190122
  Transmission Date: 20190417
  Serious: Yes (Life-Threatening)
  Sender: FDA-Public Use
  Company Number: None

PATIENT
  Age: 39 Year
  Sex: Female
  Weight: 55.6 kg

DRUGS (1)
  1. IRON SUCROSE [Suspect]
     Active Substance: IRON SUCROSE
     Indication: IRON DEFICIENCY ANAEMIA
     Dosage: ?          OTHER FREQUENCY:WEEKLY;?
     Route: 042
     Dates: start: 20190118, end: 20190118

REACTIONS (8)
  - Dizziness [None]
  - Unresponsive to stimuli [None]
  - Swollen tongue [None]
  - Infusion related reaction [None]
  - Chills [None]
  - Loss of consciousness [None]
  - Feeling cold [None]
  - Palpitations [None]

NARRATIVE: CASE EVENT DATE: 20190118
